FAERS Safety Report 13839565 (Version 5)
Quarter: 2017Q4

REPORT INFORMATION
  Report Type: Spontaneous
  Country: DE (occurrence: DE)
  Receive Date: 20170807
  Receipt Date: 20171005
  Transmission Date: 20180320
  Serious: Yes (Other)
  Sender: FDA-Public Use
  Company Number: DE-009507513-1707DEU003734

PATIENT
  Age: 34 Year
  Sex: Female

DRUGS (5)
  1. ORGALUTRAN [Concomitant]
     Active Substance: GANIRELIX ACETATE
  2. PUREGON [FOLLITROPIN BETA] [Suspect]
     Active Substance: FOLLITROPIN
     Indication: IN VITRO FERTILISATION
     Dosage: UNK
  3. PUREGON PEN INJECTOR (DEVICE) [Suspect]
     Active Substance: DEVICE
     Indication: IN VITRO FERTILISATION
     Dosage: UNK
  4. PUREGON [FOLLITROPIN BETA] [Suspect]
     Active Substance: FOLLITROPIN
     Dosage: 225 IU, UNK
  5. PUREGON PEN INJECTOR (DEVICE) [Suspect]
     Active Substance: DEVICE
     Dosage: UNK

REACTIONS (10)
  - Drug ineffective [Not Recovered/Not Resolved]
  - Pain [Unknown]
  - Cardiovascular disorder [Unknown]
  - Ovarian hyperstimulation syndrome [Unknown]
  - Blood test abnormal [Unknown]
  - Intra-abdominal fluid collection [Unknown]
  - Movement disorder [Unknown]
  - Incorrect dose administered [Unknown]
  - Device malfunction [Unknown]
  - Underdose [Unknown]

NARRATIVE: CASE EVENT DATE: 2017
